FAERS Safety Report 22659767 (Version 11)
Quarter: 2025Q1

REPORT INFORMATION
  Report Type: Report from Study
  Country: CA (occurrence: CA)
  Receive Date: 20230630
  Receipt Date: 20250318
  Transmission Date: 20250408
  Serious: No
  Sender: ABBVIE
  Company Number: CA-ABBVIE-5310196

PATIENT
  Age: 59 Year
  Sex: Female

DRUGS (68)
  1. VENETOCLAX [Suspect]
     Active Substance: VENETOCLAX
     Indication: Acute myeloid leukaemia
     Route: 048
     Dates: start: 20230227, end: 20230326
  2. VENETOCLAX [Suspect]
     Active Substance: VENETOCLAX
     Indication: Acute myeloid leukaemia
     Route: 048
     Dates: start: 20230327, end: 20230423
  3. VENETOCLAX [Suspect]
     Active Substance: VENETOCLAX
     Indication: Acute myeloid leukaemia
     Route: 048
     Dates: start: 20230216, end: 20230217
  4. VENETOCLAX [Suspect]
     Active Substance: VENETOCLAX
     Indication: Acute myeloid leukaemia
     Route: 048
     Dates: start: 20230217, end: 20230218
  5. VENETOCLAX [Suspect]
     Active Substance: VENETOCLAX
     Indication: Acute myeloid leukaemia
     Route: 048
     Dates: start: 20230218, end: 20230219
  6. VENETOCLAX [Suspect]
     Active Substance: VENETOCLAX
     Indication: Acute myeloid leukaemia
     Route: 048
     Dates: start: 20230219, end: 20230226
  7. COVID-19 vaccine mRNA [Concomitant]
     Indication: COVID-19 prophylaxis
     Route: 030
  8. COVID-19 vaccine mRNA [Concomitant]
     Indication: COVID-19 prophylaxis
     Route: 030
  9. COVID-19 vaccine mRNA [Concomitant]
     Indication: COVID-19 prophylaxis
     Route: 030
  10. COVID-19 vaccine mRNA [Concomitant]
     Indication: COVID-19 prophylaxis
     Route: 030
  11. COVID-19 vaccine mRNA [Concomitant]
     Indication: COVID-19 prophylaxis
     Route: 030
  12. Bendamustine;Obinutuzumab [Concomitant]
     Indication: Product used for unknown indication
     Route: 065
  13. CISPLATIN [Concomitant]
     Active Substance: CISPLATIN
     Indication: Product used for unknown indication
  14. AZACITIDINE [Suspect]
     Active Substance: AZACITIDINE
     Indication: Acute myeloid leukaemia
     Route: 065
     Dates: start: 20230327, end: 20230404
  15. AZACITIDINE [Suspect]
     Active Substance: AZACITIDINE
     Indication: Acute myeloid leukaemia
     Route: 065
     Dates: start: 20230204, end: 20230210
  16. AZACITIDINE [Suspect]
     Active Substance: AZACITIDINE
     Indication: Acute myeloid leukaemia
     Route: 065
     Dates: start: 20230227, end: 20230307
  17. GEMCITABINE [Concomitant]
     Active Substance: GEMCITABINE
     Indication: Product used for unknown indication
     Dates: start: 201904
  18. BENZYDAMINE HYDROCHLORIDE [Concomitant]
     Active Substance: BENZYDAMINE HYDROCHLORIDE
     Indication: Mucosal inflammation
     Dosage: 1  LID CUP
     Route: 048
     Dates: start: 20230425
  19. Statex [Concomitant]
     Indication: Pain
     Route: 048
     Dates: start: 20230424, end: 20230425
  20. VITAMIN D [Concomitant]
     Active Substance: VITAMIN D NOS
     Indication: Routine health maintenance
     Dosage: 2000 UNIT
     Route: 048
     Dates: start: 20230425
  21. NYSTATIN [Concomitant]
     Active Substance: NYSTATIN
     Indication: Stomatitis
     Route: 048
     Dates: start: 20230424, end: 20230424
  22. CYTARABINE\DAUNORUBICIN [Concomitant]
     Active Substance: CYTARABINE\DAUNORUBICIN
     Indication: Acute myeloid leukaemia
     Route: 048
     Dates: start: 20230502, end: 20230502
  23. CYTARABINE\DAUNORUBICIN [Concomitant]
     Active Substance: CYTARABINE\DAUNORUBICIN
     Indication: Acute myeloid leukaemia
     Route: 042
     Dates: start: 20230430, end: 20230530
  24. CYTARABINE\DAUNORUBICIN [Concomitant]
     Active Substance: CYTARABINE\DAUNORUBICIN
     Indication: Acute myeloid leukaemia
     Route: 042
     Dates: start: 20230428, end: 20230428
  25. SEPTRA [Concomitant]
     Active Substance: SULFAMETHOXAZOLE\TRIMETHOPRIM
     Indication: Prophylaxis
     Route: 048
     Dates: start: 20220126
  26. SODIUM BICARBONATE [Concomitant]
     Active Substance: SODIUM BICARBONATE
     Indication: Stomatitis
     Route: 048
     Dates: start: 20230113, end: 20230223
  27. SODIUM BICARBONATE [Concomitant]
     Active Substance: SODIUM BICARBONATE
     Indication: Stomatitis
     Route: 048
     Dates: start: 20230426
  28. SENOKOT [Concomitant]
     Active Substance: SENNOSIDES
     Indication: Constipation
     Route: 048
     Dates: start: 20230113, end: 20230223
  29. DIPHENHYDRAMINE [Concomitant]
     Active Substance: DIPHENHYDRAMINE
     Indication: Chemotherapy side effect prophylaxis
     Route: 048
     Dates: start: 20230310
  30. ACYCLOVIR [Concomitant]
     Active Substance: ACYCLOVIR
     Indication: Antiviral prophylaxis
     Route: 048
     Dates: start: 20220126
  31. GRANISETRON [Concomitant]
     Active Substance: GRANISETRON
     Indication: Nausea
     Route: 042
     Dates: start: 20230502, end: 20230502
  32. GRANISETRON [Concomitant]
     Active Substance: GRANISETRON
     Indication: Nausea
     Route: 042
     Dates: start: 20230430, end: 20230530
  33. GRANISETRON [Concomitant]
     Active Substance: GRANISETRON
     Indication: Nausea
     Route: 042
     Dates: start: 20230428, end: 20230428
  34. PIPERACILLIN SODIUM\TAZOBACTAM SODIUM [Concomitant]
     Active Substance: PIPERACILLIN SODIUM\TAZOBACTAM SODIUM
     Indication: Infection
     Route: 042
     Dates: start: 20230217, end: 20230223
  35. PIPERACILLIN SODIUM\TAZOBACTAM SODIUM [Concomitant]
     Active Substance: PIPERACILLIN SODIUM\TAZOBACTAM SODIUM
     Indication: Infection
     Route: 042
     Dates: start: 20230425, end: 20230502
  36. XYLOCAINE VISCOUS [Concomitant]
     Active Substance: LIDOCAINE HYDROCHLORIDE
     Indication: Oral pain
     Route: 048
     Dates: start: 20230427
  37. TYLENOL EXTRA STRENGTH [Concomitant]
     Active Substance: ACETAMINOPHEN
     Indication: Pain
     Dosage: TYLENOL ES, FREQUENCY TEXT: AS NEEDED
     Route: 048
     Dates: start: 20230424
  38. GRAVOL [Concomitant]
     Active Substance: DIMENHYDRINATE
     Indication: Nausea
     Route: 042
     Dates: start: 20230424
  39. HYDROMORPHONE HCL [Concomitant]
     Active Substance: HYDROMORPHONE HYDROCHLORIDE
     Indication: Pain
     Route: 048
     Dates: start: 20230425, end: 20230428
  40. CIPROFLOXACIN [Concomitant]
     Active Substance: CIPROFLOXACIN
     Indication: Neutropenia
     Route: 048
     Dates: start: 20230223
  41. MAGNESIUM OXIDE [Concomitant]
     Active Substance: MAGNESIUM OXIDE
     Indication: Mineral supplementation
     Route: 048
     Dates: start: 20230117
  42. ZOFRAN [Concomitant]
     Active Substance: ONDANSETRON HYDROCHLORIDE
     Indication: Nausea
     Dates: start: 20230425
  43. ALLOPURINOL [Concomitant]
     Active Substance: ALLOPURINOL
     Indication: Prophylaxis
     Route: 048
     Dates: start: 20230216, end: 20230223
  44. ALLOPURINOL [Concomitant]
     Active Substance: ALLOPURINOL
     Indication: Prophylaxis
     Route: 048
     Dates: start: 20230425
  45. SODIUM CHLORIDE [Concomitant]
     Active Substance: SODIUM CHLORIDE
     Indication: Dehydration
     Route: 042
     Dates: start: 20230424
  46. OXYGEN [Concomitant]
     Active Substance: OXYGEN
     Indication: Oxygen saturation decreased
     Route: 045
     Dates: start: 20230113, end: 20230223
  47. VANCOMYCIN HYDROCHLORIDE [Concomitant]
     Active Substance: VANCOMYCIN HYDROCHLORIDE
     Indication: Antibiotic therapy
     Route: 042
     Dates: start: 20230426, end: 20230427
  48. Vashe [Concomitant]
     Indication: Vulvovaginal injury
     Dates: start: 20230116
  49. TYLENOL [Concomitant]
     Active Substance: ACETAMINOPHEN
     Indication: Chemotherapy side effect prophylaxis
     Route: 048
     Dates: start: 20230310
  50. TYLENOL [Concomitant]
     Active Substance: ACETAMINOPHEN
     Indication: Chemotherapy side effect prophylaxis
     Route: 048
     Dates: start: 20230121, end: 20230223
  51. TYLENOL [Concomitant]
     Active Substance: ACETAMINOPHEN
     Indication: Chemotherapy side effect prophylaxis
     Route: 048
     Dates: start: 20230116, end: 20230116
  52. TYLENOL [Concomitant]
     Active Substance: ACETAMINOPHEN
     Indication: Chemotherapy side effect prophylaxis
     Route: 048
     Dates: start: 20230424
  53. POLYETHYLENE GLYCOL [Concomitant]
     Active Substance: POLYETHYLENE GLYCOL
     Indication: Constipation
     Dosage: PRN
     Dates: start: 20230425
  54. VYXEOS [Concomitant]
     Active Substance: CYTARABINE\DAUNORUBICIN
     Indication: Acute myeloid leukaemia
  55. DEXAMETHASONE [Concomitant]
     Active Substance: DEXAMETHASONE
     Indication: Product used for unknown indication
  56. TRANEXAMIC ACID [Concomitant]
     Active Substance: TRANEXAMIC ACID
     Indication: Gingival bleeding
     Route: 048
     Dates: start: 20230113, end: 20230223
  57. ONDANSETRON [Concomitant]
     Active Substance: ONDANSETRON
     Indication: Nausea
     Dosage: 4-8 MG, PRN
     Route: 042
     Dates: start: 20230113, end: 20230223
  58. BENADRYL [Concomitant]
     Active Substance: DIPHENHYDRAMINE HYDROCHLORIDE
     Indication: Antiallergic therapy
     Route: 042
     Dates: start: 20230113, end: 20230223
  59. POLYETHYLENE GLYCOL 3350 [Concomitant]
     Active Substance: POLYETHYLENE GLYCOL 3350
     Indication: Constipation
     Route: 048
     Dates: start: 20230113, end: 20230223
  60. CALCIUM GLUCONATE [Concomitant]
     Active Substance: CALCIUM GLUCONATE
     Indication: Mineral supplementation
     Route: 042
     Dates: start: 20230113, end: 20230223
  61. K dur [Concomitant]
     Indication: Electrolyte substitution therapy
     Dosage: 40 MCG
     Route: 048
     Dates: start: 20230227, end: 20230227
  62. K dur [Concomitant]
     Indication: Electrolyte substitution therapy
     Dosage: 40 MCG
     Route: 048
     Dates: start: 20230301, end: 20230301
  63. DIMENHYDRINATE [Concomitant]
     Active Substance: DIMENHYDRINATE
     Indication: Nausea
     Dosage: 25-50 MG, Q4H PRN, PER ORAL
     Route: 042
     Dates: start: 20230113, end: 20230223
  64. MAGNESIUM SULFATE [Concomitant]
     Active Substance: MAGNESIUM SULFATE
     Indication: Mineral supplementation
     Route: 042
     Dates: start: 20230113, end: 20230223
  65. DAUNORUBICIN [Concomitant]
     Active Substance: DAUNORUBICIN
     Indication: Acute myeloid leukaemia
     Dosage: DAUNORUBICIN CYTARABINE?LIPOSOME
     Route: 042
     Dates: start: 20230428, end: 20230428
  66. DAUNORUBICIN [Concomitant]
     Active Substance: DAUNORUBICIN
     Indication: Acute myeloid leukaemia
     Dosage: DAUNORUBICIN CYTARABINE?LIPOSOME
     Route: 042
     Dates: start: 20230502, end: 20230502
  67. DAUNORUBICIN [Concomitant]
     Active Substance: DAUNORUBICIN
     Indication: Acute myeloid leukaemia
     Dosage: DAUNORUBICIN CYTARABINE?LIPOSOME
     Route: 042
     Dates: start: 20230430, end: 20230430
  68. MORPHINE SULFATE [Concomitant]
     Active Substance: MORPHINE SULFATE
     Indication: Pain
     Route: 048
     Dates: start: 20230424, end: 20230425

REACTIONS (1)
  - Hypokalaemia [Recovered/Resolved]

NARRATIVE: CASE EVENT DATE: 20230427
